FAERS Safety Report 5047911-4 (Version None)
Quarter: 2006Q3

REPORT INFORMATION
  Report Type: 
  Country: None (occurrence: None)
  Receive Date: 20060711
  Receipt Date: 20060605
  Transmission Date: 20061208
  Serious: Yes (Other)
  Sender: FDA-Public Use
  Company Number: PHHC2-006

PATIENT
  Age: 74 Year
  Sex: Male

DRUGS (2)
  1. NOGITECAN HYDROCHLORIDE [Suspect]
     Dosage: 1MGM2 PER DAY
     Dates: start: 20060120, end: 20060523
  2. CISPLATIN [Suspect]
     Indication: SMALL CELL CARCINOMA
     Dosage: 60MGM2 PER DAY
     Route: 042
     Dates: start: 20060120, end: 20060519

REACTIONS (13)
  - ALOPECIA [None]
  - ANOREXIA [None]
  - CHEILITIS [None]
  - FATIGUE [None]
  - HAEMOGLOBIN DECREASED [None]
  - MONOCYTE COUNT INCREASED [None]
  - NAUSEA [None]
  - NEUTROPHIL COUNT DECREASED [None]
  - PLATELET COUNT DECREASED [None]
  - RED BLOOD CELL COUNT DECREASED [None]
  - STOMATITIS [None]
  - VOMITING [None]
  - WHITE BLOOD CELL COUNT DECREASED [None]
